FAERS Safety Report 14638925 (Version 1)
Quarter: 2018Q1

REPORT INFORMATION
  Report Type: Spontaneous
  Country: IN (occurrence: IN)
  Receive Date: 20180315
  Receipt Date: 20180315
  Transmission Date: 20180509
  Serious: Yes (Hospitalization, Other)
  Sender: FDA-Public Use
  Company Number: IN-CIPLA LTD.-2018IN11588

PATIENT

DRUGS (2)
  1. PREGABALIN. [Concomitant]
     Active Substance: PREGABALIN
     Indication: FIBROMYALGIA
     Dosage: UNK
     Route: 065
  2. ATORVASTATIN [Suspect]
     Active Substance: ATORVASTATIN
     Indication: DYSLIPIDAEMIA
     Dosage: 20 MG AT NIGHT DAILY
     Route: 065

REACTIONS (3)
  - Condition aggravated [Recovered/Resolved]
  - Autoimmune thyroiditis [Recovered/Resolved]
  - Rhabdomyolysis [Recovered/Resolved]
